FAERS Safety Report 10879917 (Version 3)
Quarter: 2015Q2

REPORT INFORMATION
  Report Type: Spontaneous
  Country: US (occurrence: US)
  Receive Date: 20150302
  Receipt Date: 20150417
  Transmission Date: 20150821
  Serious: Yes (Other)
  Sender: FDA-Public Use
  Company Number: US-PFIZER INC-2015069135

PATIENT
  Age: 63 Year
  Sex: Female

DRUGS (4)
  1. XANAX [Suspect]
     Active Substance: ALPRAZOLAM
     Indication: PANIC ATTACK
     Dosage: 0.05 MG UP TO TWELVE, DAILY
     Route: 048
  2. LEVOTHYROXINE [Concomitant]
     Active Substance: LEVOTHYROXINE
     Indication: THYROID DISORDER
  3. XANAX [Suspect]
     Active Substance: ALPRAZOLAM
     Dosage: 2MG TABLET, SCORED TO TAKE 0.05MG UP TO TWELVE A DAY
     Route: 048
  4. EMSAM PATCH [Concomitant]
     Indication: DEPRESSION
     Dosage: UNK UNK, 1X/DAY (ONCE EVERY 24 HOURS)

REACTIONS (2)
  - Drug dependence [Unknown]
  - Drug ineffective [Unknown]
